FAERS Safety Report 15351892 (Version 1)
Quarter: 2018Q3

REPORT INFORMATION
  Report Type: Spontaneous
  Country: AE (occurrence: AE)
  Receive Date: 20180905
  Receipt Date: 20180905
  Transmission Date: 20181010
  Serious: Yes (Death)
  Sender: FDA-Public Use
  Company Number: AE-PFIZER INC-2018357019

PATIENT
  Age: 46 Year
  Sex: Female

DRUGS (1)
  1. SUTENT [Suspect]
     Active Substance: SUNITINIB MALATE
     Indication: RENAL CELL CARCINOMA
     Dosage: 50 MG, CYCLIC: 1 CAPSULE FOR 4 WEEKS THEN 2 WEEKS OFF
     Route: 048
     Dates: start: 20180523, end: 20180722

REACTIONS (1)
  - Death [Fatal]

NARRATIVE: CASE EVENT DATE: 20180902
